FAERS Safety Report 9375425 (Version 1)
Quarter: 2013Q2

REPORT INFORMATION
  Report Type: Spontaneous
  Country: US (occurrence: US)
  Receive Date: 20130628
  Receipt Date: 20130628
  Transmission Date: 20140414
  Serious: Yes (Other)
  Sender: FDA-Public Use
  Company Number: US-GLAXOSMITHKLINE-A0837517A

PATIENT
  Age: 58 Year
  Sex: Male
  Weight: 95.5 kg

DRUGS (12)
  1. AVANDIA [Suspect]
     Indication: DIABETES MELLITUS
     Dosage: 4MG PER DAY
     Route: 048
     Dates: start: 20030408, end: 20081104
  2. LIPITOR [Concomitant]
  3. GLUCOVANCE [Concomitant]
  4. INSULIN [Concomitant]
  5. VIAGRA [Concomitant]
  6. ZESTRIL [Concomitant]
  7. FLONASE [Concomitant]
  8. ASA [Concomitant]
  9. LASIX [Concomitant]
  10. HUMALOG [Concomitant]
  11. BYETTA [Concomitant]
  12. KDUR [Concomitant]

REACTIONS (3)
  - Myocardial infarction [Not Recovered/Not Resolved]
  - Cardiomyopathy [Unknown]
  - Depression [Unknown]
